FAERS Safety Report 4749162-7 (Version None)
Quarter: 2005Q3

REPORT INFORMATION
  Report Type: 
  Country: None (occurrence: None)
  Receive Date: 20050817
  Receipt Date: 20050808
  Transmission Date: 20060218
  Serious: Yes (Other)
  Sender: FDA-Public Use
  Company Number: 2005FR-00218

PATIENT
  Age: 28 Year
  Sex: Female

DRUGS (2)
  1. AMOXICILLIN [Suspect]
     Indication: TOOTH ABSCESS
     Dosage: 500 MG, TD, ORAL
     Route: 048
     Dates: start: 20050711, end: 20050712
  2. ACETAMINOPHEN W/ CODEINE [Suspect]
     Indication: PAIN
     Dosage: 2 TAB/6 HOURS, ORAL
     Route: 048
     Dates: start: 20050711, end: 20050713

REACTIONS (3)
  - DRUG RESISTANCE [None]
  - ERYTHEMA [None]
  - SWELLING FACE [None]
